FAERS Safety Report 22192775 (Version 1)
Quarter: 2023Q2

REPORT INFORMATION
  Report Type: Spontaneous
  Country: US (occurrence: US)
  Receive Date: 20230410
  Receipt Date: 20230410
  Transmission Date: 20230722
  Serious: No
  Sender: FDA-Public Use
  Company Number: US-JNJFOC-20230403395

PATIENT
  Age: 72 Year
  Sex: Male
  Weight: 103.06 kg

DRUGS (1)
  1. SIMPONI ARIA [Suspect]
     Active Substance: GOLIMUMAB
     Indication: Psoriatic arthropathy
     Route: 041
     Dates: start: 20230320

REACTIONS (2)
  - Spinal operation [Unknown]
  - Musculoskeletal stiffness [Unknown]
